FAERS Safety Report 5053549-5 (Version None)
Quarter: 2006Q3

REPORT INFORMATION
  Report Type: 
  Country: None (occurrence: None)
  Receive Date: 20060712
  Receipt Date: 20060622
  Transmission Date: 20061208
  Serious: Yes (Other)
  Sender: FDA-Public Use
  Company Number: CA200604003791

PATIENT
  Age: 54 Year
  Sex: Female

DRUGS (7)
  1. FORTEO [Suspect]
     Indication: OSTEOPOROSIS
     Dosage: 20 UG DAILY (1/D)
     Dates: start: 20051118, end: 20051219
  2. FORTEO PEN (FORTEO PEN) [Concomitant]
  3. CLONAZEPAM [Concomitant]
  4. MULTIVIT (VITAMINS NOS) [Concomitant]
  5. VITAMIN A [Concomitant]
  6. VITAMIN D [Concomitant]
  7. CALCIUM (CALCIUM) [Concomitant]

REACTIONS (2)
  - MUSCULOSKELETAL PAIN [None]
  - OVARIAN CANCER [None]
